FAERS Safety Report 10373105 (Version 1)
Quarter: 2014Q3

REPORT INFORMATION
  Report Type: Spontaneous
  Country: US (occurrence: US)
  Receive Date: 20140808
  Receipt Date: 20140808
  Transmission Date: 20150326
  Serious: No
  Sender: FDA-Public Use
  Company Number: US-BRISTOL-MYERS SQUIBB COMPANY-20029054

PATIENT
  Age: 55 Year
  Sex: Male
  Weight: 89.34 kg

DRUGS (1)
  1. SPRYCEL [Suspect]
     Active Substance: DASATINIB
     Indication: CHRONIC MYELOID LEUKAEMIA
     Dosage: INTERRUPTED ON 07JAN2014 AND RESTARTED ON 10JAN2014
     Dates: start: 20130408

REACTIONS (3)
  - Skin disorder [Unknown]
  - Pleural effusion [Unknown]
  - Rash [Not Recovered/Not Resolved]

NARRATIVE: CASE EVENT DATE: 20131210
